FAERS Safety Report 15751274 (Version 2)
Quarter: 2019Q2

REPORT INFORMATION
  Report Type: Spontaneous
  Country: US (occurrence: US)
  Receive Date: 20181221
  Receipt Date: 20190625
  Transmission Date: 20190711
  Serious: Yes (Death, Hospitalization)
  Sender: FDA-Public Use
  Company Number: US-PFIZER INC-2018520318

PATIENT
  Age: 83 Year
  Sex: Male

DRUGS (7)
  1. LYRICA [Suspect]
     Active Substance: PREGABALIN
     Indication: TRIGEMINAL NEURALGIA
     Dosage: 100 MG, 2X/DAY
     Route: 048
     Dates: start: 20140930
  2. LYRICA [Suspect]
     Active Substance: PREGABALIN
     Dosage: 100 MG, 4X/DAY
  3. TRIMETOZINE. [Concomitant]
     Active Substance: TRIMETOZINE
     Dosage: UNK
  4. LAMOTRIGINE. [Concomitant]
     Active Substance: LAMOTRIGINE
     Indication: TREMOR
     Dosage: UNK
  5. LYRICA [Suspect]
     Active Substance: PREGABALIN
     Dosage: UNK
     Dates: end: 20160915
  6. LYRICA [Suspect]
     Active Substance: PREGABALIN
     Dosage: 50 MG, UNK
     Dates: start: 201710
  7. LYRICA [Suspect]
     Active Substance: PREGABALIN
     Dosage: UNK, 2X/DAY
     Dates: start: 201806

REACTIONS (14)
  - Headache [Unknown]
  - Fall [Unknown]
  - Off label use [Unknown]
  - Gait disturbance [Unknown]
  - Feeling abnormal [Unknown]
  - Drug ineffective [Unknown]
  - Fall [Unknown]
  - Asthenia [Unknown]
  - Renal disorder [Unknown]
  - Eating disorder [Unknown]
  - Cardiac failure congestive [Fatal]
  - Weight decreased [Unknown]
  - Impaired driving ability [Unknown]
  - Dysgraphia [Unknown]

NARRATIVE: CASE EVENT DATE: 201805
